FAERS Safety Report 10518351 (Version 2)
Quarter: 2014Q4

REPORT INFORMATION
  Report Type: Spontaneous
  Country: ZA (occurrence: ZA)
  Receive Date: 20141015
  Receipt Date: 20141015
  Transmission Date: 20150528
  Serious: Yes (Other)
  Sender: FDA-Public Use
  Company Number: ZA-ASTRAZENECA-2014SE73974

PATIENT
  Age: 64 Year
  Sex: Female

DRUGS (4)
  1. MERONEM [Suspect]
     Active Substance: MEROPENEM
     Indication: SEPSIS
     Route: 041
     Dates: start: 20140929, end: 20141002
  2. CANCIDAS [Concomitant]
     Active Substance: CASPOFUNGIN ACETATE
     Indication: SEPSIS
     Route: 041
     Dates: start: 20140929, end: 20141002
  3. MERONEM [Suspect]
     Active Substance: MEROPENEM
     Indication: SEPSIS
     Route: 041
     Dates: start: 20141003, end: 20141007
  4. ZYVOXID [Concomitant]
     Active Substance: LINEZOLID
     Indication: SEPSIS
     Route: 041
     Dates: start: 20140929, end: 20141003

REACTIONS (3)
  - Prescribed overdose [Unknown]
  - Generalised tonic-clonic seizure [Recovered/Resolved]
  - Oxygen saturation decreased [Unknown]

NARRATIVE: CASE EVENT DATE: 20141002
